FAERS Safety Report 16000048 (Version 1)
Quarter: 2019Q1

REPORT INFORMATION
  Report Type: Spontaneous
  Country: US (occurrence: US)
  Receive Date: 20190225
  Receipt Date: 20190225
  Transmission Date: 20190418
  Serious: No
  Sender: FDA-Public Use
  Company Number: US-GLAXOSMITHKLINE-US2019020431

PATIENT
  Sex: Female

DRUGS (1)
  1. BENLYSTA [Suspect]
     Active Substance: BELIMUMAB
     Indication: PRODUCT USED FOR UNKNOWN INDICATION
     Route: 042

REACTIONS (8)
  - Arthralgia [Unknown]
  - Pyrexia [Unknown]
  - Insomnia [Unknown]
  - Fatigue [Not Recovered/Not Resolved]
  - Night sweats [Unknown]
  - Dyspnoea [Unknown]
  - Palpitations [Unknown]
  - Myalgia [Unknown]
